FAERS Safety Report 6706123-6 (Version None)
Quarter: 2010Q2

REPORT INFORMATION
  Report Type: 
  Country: None (occurrence: None)
  Receive Date: 20100503
  Receipt Date: 20100422
  Transmission Date: 20101027
  Serious: Yes (Death, Hospitalization)
  Sender: FDA-Public Use
  Company Number: US-BRACCO-002525

PATIENT
  Sex: Male
  Weight: 89 kg

DRUGS (2)
  1. MULTIHANCE [Suspect]
     Indication: NUCLEAR MAGNETIC RESONANCE IMAGING ABDOMINAL
     Route: 042
     Dates: start: 20090218, end: 20090218
  2. MULTIHANCE [Suspect]
     Indication: RENAL ARTERY STENOSIS
     Route: 042
     Dates: start: 20090218, end: 20090218

REACTIONS (1)
  - CONTRAST MEDIA REACTION [None]
